FAERS Safety Report 5106222-9 (Version None)
Quarter: 2006Q3

REPORT INFORMATION
  Report Type: 
  Country: None (occurrence: None)
  Receive Date: 20060912
  Receipt Date: 20060830
  Transmission Date: 20061208
  Serious: Yes (Other)
  Sender: FDA-Public Use
  Company Number: 2006107166

PATIENT
  Age: 30 Year
  Sex: 0

DRUGS (1)
  1. SUTENT [Suspect]
     Indication: GASTROINTESTINAL STROMAL TUMOUR
     Dosage: ORAL
     Route: 048

REACTIONS (6)
  - ABNORMAL BEHAVIOUR [None]
  - ANOREXIA [None]
  - BLINDNESS [None]
  - DECUBITUS ULCER [None]
  - GENERAL PHYSICAL HEALTH DETERIORATION [None]
  - LOWER LIMB FRACTURE [None]
